FAERS Safety Report 22302553 (Version 3)
Quarter: 2023Q2

REPORT INFORMATION
  Report Type: Spontaneous
  Country: US (occurrence: US)
  Receive Date: 20230510
  Receipt Date: 20230623
  Transmission Date: 20230722
  Serious: Yes (Death, Hospitalization)
  Sender: FDA-Public Use
  Company Number: US-002147023-NVSC2023US105257

PATIENT
  Age: 68 Year
  Sex: Male
  Weight: 57 kg

DRUGS (1)
  1. PLUVICTO [Suspect]
     Active Substance: LUTETIUM LU-177 VIPIVOTIDE TETRAXETAN
     Indication: Product used for unknown indication
     Dosage: UNK
     Route: 042
     Dates: start: 20220921, end: 20230310

REACTIONS (2)
  - Ill-defined disorder [Fatal]
  - Pain [Unknown]

NARRATIVE: CASE EVENT DATE: 20230427
